FAERS Safety Report 5524882-5 (Version None)
Quarter: 2007Q4

REPORT INFORMATION
  Report Type: 
  Country: None (occurrence: None)
  Receive Date: 20071119
  Receipt Date: 20071107
  Transmission Date: 20080405
  Serious: No
  Sender: FDA-Public Use
  Company Number: 2007-165986-NL

PATIENT
  Age: 24 Year
  Sex: Female

DRUGS (2)
  1. ETONOGESTREL [Suspect]
     Dosage: DF
     Dates: start: 20070821
  2. FERROUS SULFATE TAB [Concomitant]

REACTIONS (3)
  - HYPERTHYROIDISM [None]
  - METRORRHAGIA [None]
  - PANIC ATTACK [None]
